FAERS Safety Report 5700926-2 (Version None)
Quarter: 2008Q2

REPORT INFORMATION
  Report Type: 
  Country: None (occurrence: None)
  Receive Date: 20080410
  Receipt Date: 20080404
  Transmission Date: 20081010
  Serious: Yes (Hospitalization)
  Sender: FDA-Public Use
  Company Number: B0513612A

PATIENT
  Age: 72 Year
  Sex: Male
  Weight: 44 kg

DRUGS (12)
  1. VALTREX [Suspect]
     Indication: HERPES ZOSTER
     Dosage: 500MG PER DAY
     Route: 048
     Dates: start: 20080306, end: 20080310
  2. ALLELOCK [Suspect]
     Indication: PRURITUS
     Dosage: 5MG TWICE PER DAY
     Route: 048
     Dates: start: 20080308, end: 20080310
  3. CYANOCOBALAMIN [Concomitant]
     Indication: HERPES ZOSTER
     Dosage: 1500MG PER DAY
     Route: 048
     Dates: start: 20080308, end: 20080314
  4. NITRODERM [Concomitant]
     Dosage: 25MG PER DAY
     Route: 062
     Dates: start: 20020601
  5. PRECIPITATED CALCIUM CARBONATE [Concomitant]
     Dosage: 1500MG PER DAY
     Route: 048
     Dates: start: 20020801
  6. URSOSAN [Concomitant]
     Indication: CHOLECYSTITIS
     Dosage: 150MG PER DAY
     Route: 048
     Dates: start: 20020801
  7. FUROSEMIDE [Concomitant]
     Dosage: 160MG PER DAY
     Route: 048
     Dates: start: 20020801
  8. ASPIRIN [Concomitant]
     Indication: CEREBRAL INFARCTION
     Dosage: 100MG PER DAY
     Route: 048
     Dates: start: 20070501
  9. GLYSENNID [Concomitant]
     Indication: CONSTIPATION
     Dosage: 24MG PER DAY
     Route: 048
     Dates: start: 20020801
  10. RISUMIC [Concomitant]
     Dosage: 10MG PER DAY
     Route: 048
     Dates: start: 20050101
  11. PLETAL [Concomitant]
     Indication: CEREBRAL INFARCTION
     Dosage: 50MG PER DAY
     Route: 048
     Dates: start: 20070501
  12. D-SORBITOL [Concomitant]
     Indication: CONSTIPATION
     Dosage: 15ML PER DAY
     Route: 048
     Dates: start: 20070101

REACTIONS (3)
  - ALTERED STATE OF CONSCIOUSNESS [None]
  - DYSARTHRIA [None]
  - SOMNOLENCE [None]
